FAERS Safety Report 7958741-5 (Version None)
Quarter: 2011Q4

REPORT INFORMATION
  Report Type: 
  Country: None (occurrence: None)
  Receive Date: 20111206
  Receipt Date: 20111124
  Transmission Date: 20120403
  Serious: Yes (Hospitalization)
  Sender: FDA-Public Use
  Company Number: ES-JNJFOC-20111111471

PATIENT
  Age: 35 Year
  Sex: Female

DRUGS (2)
  1. REMICADE [Suspect]
     Indication: POLYMYOSITIS
     Dosage: DOSE REPORTED AS ^5^ (UNITS NOT REPORTED)
     Route: 042
     Dates: start: 20110419, end: 20110929
  2. REMICADE [Suspect]
     Indication: DERMATOMYOSITIS
     Dosage: DOSE REPORTED AS ^5^ (UNITS NOT REPORTED)
     Route: 042
     Dates: start: 20110419, end: 20110929

REACTIONS (1)
  - SALMONELLA SEPSIS [None]
